FAERS Safety Report 14868078 (Version 3)
Quarter: 2018Q3

REPORT INFORMATION
  Report Type: Spontaneous
  Country: CZ (occurrence: CZ)
  Receive Date: 20180509
  Receipt Date: 20180903
  Transmission Date: 20181010
  Serious: Yes (Hospitalization, Other)
  Sender: FDA-Public Use
  Company Number: CZ-BRISTOL-MYERS SQUIBB COMPANY-BMS-2018-041493

PATIENT
  Age: 67 Year

DRUGS (3)
  1. NIVOLUMAB [Suspect]
     Active Substance: NIVOLUMAB
     Indication: PRODUCT USED FOR UNKNOWN INDICATION
     Dosage: UNK
     Route: 065
     Dates: start: 20180409
  2. INSULIN [Concomitant]
     Active Substance: INSULIN NOS
     Indication: TYPE 2 DIABETES MELLITUS
     Route: 065
  3. NIVOLUMAB [Suspect]
     Active Substance: NIVOLUMAB
     Indication: RENAL CELL CARCINOMA
     Dosage: UNK UNK, Q2WK
     Route: 042
     Dates: start: 201710, end: 201802

REACTIONS (14)
  - Dyspnoea [Unknown]
  - Hypotension [Unknown]
  - Asthenia [Unknown]
  - Peripheral swelling [Unknown]
  - Hypochloraemia [Unknown]
  - Metabolic disorder [Unknown]
  - Dehydration [Unknown]
  - Arrhythmia [Unknown]
  - Hypokalaemia [Unknown]
  - Respiratory tract infection viral [Unknown]
  - General physical health deterioration [Recovering/Resolving]
  - Cardiac failure [Unknown]
  - Atrial fibrillation [Unknown]
  - Adrenal insufficiency [Unknown]

NARRATIVE: CASE EVENT DATE: 20180302
